FAERS Safety Report 9176768 (Version 1)
Quarter: 2013Q1

REPORT INFORMATION
  Report Type: Spontaneous
  Country: US (occurrence: US)
  Receive Date: 20130321
  Receipt Date: 20130321
  Transmission Date: 20140127
  Serious: Yes (Other)
  Sender: FDA-Public Use
  Company Number: PHEH2013US003855

PATIENT
  Sex: Female

DRUGS (4)
  1. DIOVAN [Suspect]
     Dosage: 160 MG, UNK
     Route: 048
  2. DIOVAN [Suspect]
     Dosage: 320 MG, UNK
  3. DIOVAN [Suspect]
     Dosage: 160 MG, UNK
  4. DOXASIN [Concomitant]

REACTIONS (2)
  - Blood pressure increased [Unknown]
  - Depressed mood [Unknown]
